FAERS Safety Report 5021088-3 (Version None)
Quarter: 2006Q2

REPORT INFORMATION
  Report Type: 
  Country: None (occurrence: None)
  Receive Date: 20060606
  Receipt Date: 20060606
  Transmission Date: 20061013
  Serious: Yes (Hospitalization, Other)
  Sender: FDA-Public Use
  Company Number: None

PATIENT
  Sex: Female
  Weight: 130 kg

DRUGS (3)
  1. CYCLOPHOSPHAMIDE [Suspect]
     Indication: BREAST CANCER
     Dosage: 1110 MG
     Dates: start: 20060525
  2. TAXOTERE [Suspect]
     Dosage: 165 MG
     Dates: start: 20060525
  3. DOXORUBICIN HYDROCHLORIDE [Suspect]
     Dosage: 110 MG
     Dates: start: 20060525

REACTIONS (2)
  - ABDOMINAL STRANGULATED HERNIA [None]
  - INTESTINAL PERFORATION [None]
